FAERS Safety Report 16083503 (Version 1)
Quarter: 2019Q1

REPORT INFORMATION
  Report Type: Spontaneous
  Country: US (occurrence: US)
  Receive Date: 20190318
  Receipt Date: 20190318
  Transmission Date: 20190418
  Serious: Yes (Other)
  Sender: FDA-Public Use
  Company Number: US-AMGEN-USASP2019038665

PATIENT
  Age: 84 Year
  Sex: Female

DRUGS (2)
  1. SUTENT [Suspect]
     Active Substance: SUNITINIB MALATE
     Indication: PANCREATIC CARCINOMA
     Dosage: 37.5 MILLIGRAM DAILY FOR 14 DAYS AND OFF FOR 7 DAYS
     Route: 048
  2. PROLIA [Suspect]
     Active Substance: DENOSUMAB
     Indication: PRODUCT USED FOR UNKNOWN INDICATION
     Dosage: UNK
     Route: 065

REACTIONS (6)
  - Renal disorder [Recovering/Resolving]
  - Asthenia [Unknown]
  - Dysphonia [Unknown]
  - Impaired healing [Unknown]
  - Arthritis [Unknown]
  - Pneumonia [Unknown]

NARRATIVE: CASE EVENT DATE: 20190227
